FAERS Safety Report 7095578-6 (Version None)
Quarter: 2010Q4

REPORT INFORMATION
  Report Type: 
  Country: None (occurrence: None)
  Receive Date: 20101103
  Receipt Date: 20101025
  Transmission Date: 20110411
  Serious: Yes (Death)
  Sender: FDA-Public Use
  Company Number: 001699

PATIENT
  Sex: Male

DRUGS (3)
  1. VIMPAT [Suspect]
     Indication: EPILEPSY
     Dosage: 250 MG BID, 150 MG BID ORAL
     Route: 048
  2. LAMICTAL [Concomitant]
  3. CLONAZEPAM [Concomitant]

REACTIONS (2)
  - CONVULSION [None]
  - SUDDEN UNEXPLAINED DEATH IN EPILEPSY [None]
